FAERS Safety Report 15819122 (Version 1)
Quarter: 2019Q1

REPORT INFORMATION
  Report Type: Spontaneous
  Country: US (occurrence: US)
  Receive Date: 20190114
  Receipt Date: 20190114
  Transmission Date: 20190417
  Serious: No
  Sender: FDA-Public Use
  Company Number: US-ROCHE-2238401

PATIENT
  Sex: Male

DRUGS (2)
  1. NUTROPIN AQ [Suspect]
     Active Substance: SOMATROPIN
     Indication: BLOOD GROWTH HORMONE
     Dosage: 0.6 MG/KG/WEEK
     Route: 058
     Dates: start: 2010, end: 20180921
  2. ANASTROZOL [Concomitant]
     Active Substance: ANASTROZOLE
     Route: 065
     Dates: start: 2017, end: 2018

REACTIONS (2)
  - Insulin-like growth factor increased [Not Recovered/Not Resolved]
  - Alopecia [Not Recovered/Not Resolved]

NARRATIVE: CASE EVENT DATE: 2017
